FAERS Safety Report 4618534-3 (Version None)
Quarter: 2005Q1

REPORT INFORMATION
  Report Type: 
  Country: None (occurrence: None)
  Receive Date: 20050323
  Receipt Date: 20050307
  Transmission Date: 20050727
  Serious: Yes (Hospitalization)
  Sender: FDA-Public Use
  Company Number: 2004121680

PATIENT
  Age: 65 Year
  Sex: Male
  Weight: 74 kg

DRUGS (7)
  1. CAMPTOSAR [Suspect]
     Indication: COLON CANCER
     Dosage: 342 MG
     Dates: start: 20041123
  2. FLUOROURACIL [Suspect]
     Indication: COLON CANCER
     Dosage: 760 MG
     Dates: start: 20041123
  3. LEUCOVORIN CALCIUM [Concomitant]
     Indication: COLON CANCER
     Dosage: SEE IMAGE
     Dates: start: 20041123
  4. LEUCOVORIN CALCIUM [Concomitant]
     Indication: COLON CANCER
     Dosage: SEE IMAGE
     Dates: start: 20041123
  5. OPIUM TINCTURE                    (OPIUM TINCTURE) [Concomitant]
  6. ATROPINE [Concomitant]
  7. PHENPROCOUMON                (PHENPROCOUMON) [Concomitant]

REACTIONS (7)
  - COAGULOPATHY [None]
  - CONDITION AGGRAVATED [None]
  - HAEMATOMA [None]
  - INTERNATIONAL NORMALISED RATIO INCREASED [None]
  - POST PROCEDURAL DIARRHOEA [None]
  - PROTHROMBIN TIME PROLONGED [None]
  - RENAL FAILURE [None]
